FAERS Safety Report 17582955 (Version 1)
Quarter: 2020Q1

REPORT INFORMATION
  Report Type: Spontaneous
  Country: US (occurrence: US)
  Receive Date: 20200325
  Receipt Date: 20200325
  Transmission Date: 20200409
  Serious: No
  Sender: FDA-Public Use
  Company Number: US-ENDO PHARMACEUTICALS INC-2019-103724

PATIENT
  Age: 61 Year
  Sex: Male
  Weight: 82.54 kg

DRUGS (2)
  1. AVEED [Suspect]
     Active Substance: TESTOSTERONE UNDECANOATE
     Dosage: 750MG/3ML (INITIAL AND 4 WEEKS LATER)
     Route: 030
     Dates: start: 20170411, end: 20171023
  2. AVEED [Suspect]
     Active Substance: TESTOSTERONE UNDECANOATE
     Indication: SECONDARY HYPOGONADISM
     Dosage: 750MG/3ML, ONCE EVERY 10WK
     Route: 030
     Dates: start: 20190401

REACTIONS (3)
  - Product quality issue [Unknown]
  - Polycythaemia [Recovered/Resolved]
  - Product dose omission [Unknown]

NARRATIVE: CASE EVENT DATE: 2017
